FAERS Safety Report 11170697 (Version 2)
Quarter: 2015Q2

REPORT INFORMATION
  Report Type: Spontaneous
  Country: US (occurrence: US)
  Receive Date: 20150608
  Receipt Date: 20150619
  Transmission Date: 20150821
  Serious: Yes (Hospitalization)
  Sender: FDA-Public Use
  Company Number: US-JNJFOC-20150601698

PATIENT
  Age: 71 Year
  Sex: Male

DRUGS (7)
  1. IMBRUVICA [Suspect]
     Active Substance: IBRUTINIB
     Indication: CHRONIC LYMPHOCYTIC LEUKAEMIA
     Route: 048
     Dates: start: 20150220, end: 20150503
  2. ALLOPURINOL. [Concomitant]
     Active Substance: ALLOPURINOL
  3. MECLIZINE [Concomitant]
     Active Substance: MECLIZINE\MECLIZINE HYDROCHLORIDE
  4. ACYCLOVIR. [Concomitant]
     Active Substance: ACYCLOVIR
  5. TAMSULOSIN [Concomitant]
     Active Substance: TAMSULOSIN
  6. METOCLOPRAMIDE. [Concomitant]
     Active Substance: METOCLOPRAMIDE
  7. FLOMAX [Concomitant]
     Active Substance: TAMSULOSIN HYDROCHLORIDE

REACTIONS (7)
  - Bile duct stone [Recovering/Resolving]
  - Decreased appetite [Recovering/Resolving]
  - Klebsiella sepsis [Unknown]
  - Diarrhoea [Not Recovered/Not Resolved]
  - Hypogammaglobulinaemia [Unknown]
  - Haematemesis [Recovered/Resolved]
  - Liver abscess [Recovering/Resolving]

NARRATIVE: CASE EVENT DATE: 2015
